FAERS Safety Report 20632470 (Version 1)
Quarter: 2022Q1

REPORT INFORMATION
  Report Type: Spontaneous
  Country: US (occurrence: None)
  Receive Date: 20220324
  Receipt Date: 20220324
  Transmission Date: 20220424
  Serious: No
  Sender: FDA-Public Use
  Company Number: None

PATIENT

DRUGS (2)
  1. CALCIUM CHLORIDE [Suspect]
     Active Substance: CALCIUM CHLORIDE
     Route: 042
  2. HEPARIN LOCK FLUSH [Suspect]
     Active Substance: HEPARIN SODIUM
     Dosage: OTHER STRENGTH : 500 USP UNITS/5ML;?

REACTIONS (1)
  - Product packaging confusion [None]
